FAERS Safety Report 23853588 (Version 1)
Quarter: 2024Q2

REPORT INFORMATION
  Report Type: Spontaneous
  Country: US (occurrence: US)
  Receive Date: 20240514
  Receipt Date: 20240514
  Transmission Date: 20240716
  Serious: Yes (Death, Hospitalization)
  Sender: FDA-Public Use
  Company Number: US-MYLANLABS-2024M1043226

PATIENT
  Age: 29 Year
  Sex: Female

DRUGS (6)
  1. VERAPAMIL [Suspect]
     Active Substance: VERAPAMIL HYDROCHLORIDE
     Indication: Cerebral vasoconstriction
     Dosage: UNK
     Route: 013
  2. NICARDIPINE [Suspect]
     Active Substance: NICARDIPINE
     Indication: Cerebral vasoconstriction
     Dosage: UNK
     Route: 013
  3. VORICONAZOLE [Suspect]
     Active Substance: VORICONAZOLE
     Indication: Fusarium infection
     Dosage: UNK
     Route: 042
  4. VORICONAZOLE [Suspect]
     Active Substance: VORICONAZOLE
     Indication: Meningitis fungal
  5. AMPHOTERICIN B [Suspect]
     Active Substance: AMPHOTERICIN B
     Indication: Fusarium infection
     Dosage: UNK
     Route: 042
  6. AMPHOTERICIN B [Suspect]
     Active Substance: AMPHOTERICIN B
     Indication: Meningitis fungal

REACTIONS (2)
  - Drug ineffective [Fatal]
  - Off label use [Unknown]
